FAERS Safety Report 4319265-X (Version None)
Quarter: 2004Q1

REPORT INFORMATION
  Report Type: 
  Country: None (occurrence: None)
  Receive Date: 20040316
  Receipt Date: 20040227
  Transmission Date: 20041129
  Serious: Yes (Other)
  Sender: FDA-Public Use
  Company Number: DSA_24052_2004

PATIENT
  Age: 37 Year
  Sex: Female

DRUGS (12)
  1. ENALAPRIL MALEATE [Suspect]
     Indication: HYPERTENSION
     Dosage: 10 MG QD PO
     Route: 048
  2. ENDOXAN [Suspect]
     Indication: ALLERGIC GRANULOMATOUS ANGIITIS
     Dosage: 750 MG Q DAY IV
     Route: 042
     Dates: start: 20030922, end: 20030922
  3. ENDOXAN [Suspect]
     Indication: ALLERGIC GRANULOMATOUS ANGIITIS
     Dosage: 750 MG Q DAY IV
     Route: 042
     Dates: start: 20031007, end: 20031007
  4. ENDOXAN [Suspect]
     Indication: ALLERGIC GRANULOMATOUS ANGIITIS
     Dosage: 750 MG Q DAY IV
     Route: 042
     Dates: start: 20031021, end: 20031021
  5. ENDOXAN [Suspect]
     Indication: ALLERGIC GRANULOMATOUS ANGIITIS
     Dosage: 750 MG Q DAY IV
     Route: 042
     Dates: start: 20031111, end: 20031111
  6. DIANE [Suspect]
     Indication: CONTRACEPTION
     Dosage: 1 U UNK PO
     Route: 048
     Dates: end: 20031121
  7. SERETIDE ^GLAXO WELLCOME^ [Suspect]
     Indication: ASTHMA
     Dosage: 1 U Q DAY IH
     Route: 025
  8. NASONEX [Suspect]
     Dosage: 50 MCG Q DAY TP
     Route: 061
  9. PREDNISON STREULI [Concomitant]
  10. CIPRALEX [Concomitant]
  11. ANTRA [Concomitant]
  12. CALCIMAGON-D3 [Concomitant]

REACTIONS (5)
  - ABORTION [None]
  - COMPLICATIONS OF MATERNAL EXPOSURE TO THERAPEUTIC DRUGS [None]
  - DRUG EXPOSURE DURING PREGNANCY [None]
  - MATERNAL DRUGS AFFECTING FOETUS [None]
  - PREGNANCY ON ORAL CONTRACEPTIVE [None]
